FAERS Safety Report 10164841 (Version 1)
Quarter: 2014Q2

REPORT INFORMATION
  Report Type: Spontaneous
  Country: US (occurrence: US)
  Receive Date: 20140510
  Receipt Date: 20140510
  Transmission Date: 20141212
  Serious: No
  Sender: FDA-Public Use
  Company Number: US-BRISTOL-MYERS SQUIBB COMPANY-20471975

PATIENT
  Age: 50 Year
  Sex: Female

DRUGS (3)
  1. BYETTA [Suspect]
  2. METFORMIN [Concomitant]
  3. MICARDIS [Concomitant]

REACTIONS (2)
  - Malaise [Unknown]
  - Drug dose omission [Unknown]
